FAERS Safety Report 6859030-2 (Version None)
Quarter: 2010Q3

REPORT INFORMATION
  Report Type: 
  Country: None (occurrence: None)
  Receive Date: 20100719
  Receipt Date: 20080219
  Transmission Date: 20110219
  Serious: Yes (Other)
  Sender: FDA-Public Use
  Company Number: US-PFIZER INC-2008017078

PATIENT
  Sex: Female
  Weight: 66 kg

DRUGS (3)
  1. CHANTIX [Suspect]
     Indication: SMOKING CESSATION THERAPY
     Dates: start: 20071014
  2. SYNTHROID [Concomitant]
  3. VITAMINS [Concomitant]

REACTIONS (4)
  - DEPRESSION [None]
  - INITIAL INSOMNIA [None]
  - NAUSEA [None]
  - SUICIDAL IDEATION [None]
